FAERS Safety Report 7288577-2 (Version None)
Quarter: 2011Q1

REPORT INFORMATION
  Report Type: 
  Country: None (occurrence: None)
  Receive Date: 20110211
  Receipt Date: 20110211
  Transmission Date: 20110831
  Serious: Yes (Hospitalization)
  Sender: FDA-Public Use
  Company Number: PL-ELI_LILLY_AND_COMPANY-PL201006003194

PATIENT
  Sex: Female
  Weight: 50 kg

DRUGS (10)
  1. OTHER PHARMA COMPANY INV DRUG [Suspect]
     Indication: NON-SMALL CELL LUNG CANCER
     Dosage: 800 MG, TWICE EVERY 3 WEEKS
     Route: 042
     Dates: start: 20100525
  2. CISPLATIN [Suspect]
     Indication: NON-SMALL CELL LUNG CANCER
     Dosage: 110 MG, ONCE EVERY 3 WEEKS
     Route: 042
     Dates: start: 20100525
  3. ACETYLSALICYLIC ACID [Concomitant]
  4. CODEINE SULFATE [Concomitant]
  5. POTASSIUM CHLORIDE [Concomitant]
     Route: 042
     Dates: start: 20100529, end: 20100609
  6. BISOPROLOL [Concomitant]
  7. SODIUM CHLORIDE [Concomitant]
     Route: 042
     Dates: start: 20100529, end: 20100609
  8. GLUCOSE [Concomitant]
     Route: 042
     Dates: start: 20100527, end: 20100606
  9. GEMCITABINE HYDROCHLORIDE [Suspect]
     Indication: NON-SMALL CELL LUNG CANCER
     Dosage: 1850 MG, TWICE EVERY 3 WEEKS
     Route: 042
     Dates: start: 20100525
  10. ONDANSERTRON HCL [Concomitant]
     Dosage: UNK, UNK
     Route: 042
     Dates: start: 20100527, end: 20100601

REACTIONS (1)
  - FATIGUE [None]
